FAERS Safety Report 8046662-1 (Version None)
Quarter: 2012Q1

REPORT INFORMATION
  Report Type: 
  Country: None (occurrence: None)
  Receive Date: 20120114
  Receipt Date: 20120109
  Transmission Date: 20120608
  Serious: Yes (Other)
  Sender: FDA-Public Use
  Company Number: US-BAYER-2012-003390

PATIENT

DRUGS (1)
  1. ALEVE (CAPLET) [Suspect]
     Route: 048

REACTIONS (4)
  - RASH [None]
  - HYPERSENSITIVITY [None]
  - SWOLLEN TONGUE [None]
  - PRURITUS [None]
